FAERS Safety Report 7931427-9 (Version None)
Quarter: 2011Q4

REPORT INFORMATION
  Report Type: 
  Country: None (occurrence: None)
  Receive Date: 20111121
  Receipt Date: 20111117
  Transmission Date: 20120403
  Serious: Yes (Death, Hospitalization)
  Sender: FDA-Public Use
  Company Number: US-ABBOTT-11P-163-0873775-00

PATIENT
  Sex: Male
  Weight: 145.28 kg

DRUGS (5)
  1. HUMIRA [Suspect]
     Indication: PSORIATIC ARTHROPATHY
  2. HUMIRA [Suspect]
     Indication: RHEUMATOID ARTHRITIS
     Dates: end: 20110930
  3. AUGMENTIN [Suspect]
     Indication: BLISTER
     Dates: end: 20110901
  4. ALLOPURINOL [Suspect]
     Indication: GOUT
     Dates: start: 20110901, end: 20110901
  5. INSULIN [Concomitant]
     Indication: DIABETES MELLITUS
     Dates: end: 20110930

REACTIONS (7)
  - ERYTHEMA [None]
  - THROMBOSIS [None]
  - DELIRIUM [None]
  - STEVENS-JOHNSON SYNDROME [None]
  - SKIN EXFOLIATION [None]
  - DISORIENTATION [None]
  - BLISTER [None]
